FAERS Safety Report 23240638 (Version 1)
Quarter: 2023Q4

REPORT INFORMATION
  Report Type: Spontaneous
  Country: US (occurrence: None)
  Receive Date: 20231129
  Receipt Date: 20231129
  Transmission Date: 20240109
  Serious: Yes (Other)
  Sender: FDA-Public Use
  Company Number: None

PATIENT
  Sex: Female

DRUGS (1)
  1. MYCOPHENOLIC ACID [Suspect]
     Active Substance: MYCOPHENOLIC ACID
     Indication: Granulomatosis with polyangiitis
     Dosage: 500 MG ORAL??TAKE 1 TABLET BY MOUTH TWICE DAILY
     Route: 048
     Dates: start: 20220126

REACTIONS (2)
  - Breast cancer [None]
  - Therapy interrupted [None]
